FAERS Safety Report 13644321 (Version 1)
Quarter: 2017Q2

REPORT INFORMATION
  Report Type: Spontaneous
  Country: US (occurrence: US)
  Receive Date: 20170612
  Receipt Date: 20170612
  Transmission Date: 20170830
  Serious: No
  Sender: FDA-Public Use
  Company Number: US-ROCHE-1184762

PATIENT
  Sex: Female

DRUGS (3)
  1. XANAX [Concomitant]
     Active Substance: ALPRAZOLAM
     Route: 065
  2. CYMBALTA [Concomitant]
     Active Substance: DULOXETINE HYDROCHLORIDE
     Route: 065
  3. KLONOPIN [Suspect]
     Active Substance: CLONAZEPAM
     Indication: PANIC DISORDER
     Route: 065

REACTIONS (2)
  - Muscle twitching [Unknown]
  - Eye disorder [Unknown]
